FAERS Safety Report 9996328 (Version 1)
Quarter: 2014Q1

REPORT INFORMATION
  Report Type: Spontaneous
  Country: US (occurrence: None)
  Receive Date: 20140310
  Receipt Date: 20140310
  Transmission Date: 20141002
  Serious: Yes (Other)
  Sender: FDA-Public Use
  Company Number: None

PATIENT
  Age: 65 Year
  Sex: Male
  Weight: 99.79 kg

DRUGS (1)
  1. CIPROFLOXACIN HCL [Suspect]
     Indication: URINARY TRACT INFECTION
     Dosage: 1 PILL TWICE DAILY
     Route: 048
     Dates: start: 20140306, end: 20140307

REACTIONS (7)
  - Abdominal pain upper [None]
  - Hot flush [None]
  - Myalgia [None]
  - Abdominal pain upper [None]
  - Abdominal pain [None]
  - Neuropathy peripheral [None]
  - Feeling cold [None]
